FAERS Safety Report 19765860 (Version 1)
Quarter: 2021Q3

REPORT INFORMATION
  Report Type: Spontaneous
  Country: CN (occurrence: CN)
  Receive Date: 20210830
  Receipt Date: 20210830
  Transmission Date: 20211014
  Serious: Yes (Hospitalization)
  Sender: FDA-Public Use
  Company Number: NVSC2021CN190644

PATIENT
  Age: 57 Year
  Sex: Female
  Weight: 59 kg

DRUGS (10)
  1. SODIUM VALPROATE [Suspect]
     Active Substance: VALPROATE SODIUM
     Indication: STATUS EPILEPTICUS
     Dosage: 0.40 MG, TID
     Route: 048
     Dates: start: 20210726, end: 20210806
  2. METHYLPREDNISOLONE. [Concomitant]
     Active Substance: METHYLPREDNISOLONE
     Indication: HYPERSENSITIVITY
     Dosage: 80 ML, GTT, QD
     Route: 042
  3. OXCARBAZEPINE. [Suspect]
     Active Substance: OXCARBAZEPINE
     Indication: STATUS EPILEPTICUS
     Dosage: 600 MG, BID
     Route: 048
     Dates: start: 20210720, end: 20210806
  4. VITAMIN C [Concomitant]
     Active Substance: ASCORBIC ACID
     Indication: HYPERSENSITIVITY
     Dosage: 1 DF, QD
     Route: 042
  5. EBASTINE [Concomitant]
     Active Substance: EBASTINE
     Indication: HYPERSENSITIVITY
     Dosage: 10 MG, QD
     Route: 048
  6. LEVETIRACETAM. [Concomitant]
     Active Substance: LEVETIRACETAM
     Indication: STATUS EPILEPTICUS
     Dosage: 0.50 G, BID
     Route: 048
     Dates: start: 20210720, end: 20210806
  7. METHYLPREDNISOLONE. [Concomitant]
     Active Substance: METHYLPREDNISOLONE
     Dosage: 40 ML, GTT QD
     Route: 042
  8. CETIRIZINE [Concomitant]
     Active Substance: CETIRIZINE HYDROCHLORIDE
     Indication: HYPERSENSITIVITY
     Dosage: 10 MG, QD
     Route: 048
  9. CHLORPHENAMINE MALEATE [Concomitant]
     Active Substance: CHLORPHENIRAMINE MALEATE
     Indication: HYPERSENSITIVITY
     Dosage: 10 MG, QD
     Route: 030
  10. CALCIUM GLUCONATE. [Concomitant]
     Active Substance: CALCIUM GLUCONATE
     Indication: HYPERSENSITIVITY
     Dosage: 1 DF, QD 100ML+10%
     Route: 042

REACTIONS (2)
  - Drug eruption [Recovering/Resolving]
  - Erythema [Recovering/Resolving]

NARRATIVE: CASE EVENT DATE: 20210804
